FAERS Safety Report 9752572 (Version 1)
Quarter: 2013Q4

REPORT INFORMATION
  Report Type: Spontaneous
  Country: GB (occurrence: GB)
  Receive Date: 20131213
  Receipt Date: 20131213
  Transmission Date: 20140711
  Serious: Yes (Other)
  Sender: FDA-Public Use
  Company Number: GB-JNJFOC-20131204102

PATIENT
  Age: 21 Year
  Sex: Female

DRUGS (5)
  1. TOPIRAMATE [Suspect]
     Indication: EPILEPSY
     Dosage: DOSE: 100 (UNITS UNSPECIFIED).
     Route: 048
  2. KEPRA [Suspect]
     Indication: EPILEPSY
     Dosage: 3000 UNITS UNSPECIFIED
     Route: 065
  3. KEPRA [Suspect]
     Indication: EPILEPSY
     Dosage: DOSE 2500.0 (UNITS UNSPECIFIED).
     Route: 065
  4. TEGRETOL RETARD [Suspect]
     Indication: EPILEPSY
     Dosage: 800 (UNITS UNSPECIFIED).
     Route: 065
  5. CLOBAZAM [Suspect]
     Indication: EPILEPSY
     Dosage: 10 (UNITS UNSPECIFIED)
     Route: 065

REACTIONS (3)
  - Convulsion [Unknown]
  - Drug intolerance [Recovered/Resolved]
  - Exposure during pregnancy [Recovered/Resolved]
